FAERS Safety Report 4451622-3 (Version None)
Quarter: 2004Q3

REPORT INFORMATION
  Report Type: 
  Country: None (occurrence: None)
  Receive Date: 20040915
  Receipt Date: 20040901
  Transmission Date: 20050211
  Serious: Yes (Other)
  Sender: FDA-Public Use
  Company Number: 2004061480

PATIENT
  Sex: Female

DRUGS (4)
  1. NEURONTIN [Suspect]
     Indication: PAIN IN EXTREMITY
  2. AMLODIPINE BESYLATE [Concomitant]
  3. PAROXETINE HCL [Concomitant]
  4. ALL OTHER THEAPEUTIC PRODUCTS (ALL OTHER THERAPEUTIC PRODUCTS) [Concomitant]

REACTIONS (4)
  - DISEASE RECURRENCE [None]
  - FALL [None]
  - HIP FRACTURE [None]
  - VERTIGO [None]
